FAERS Safety Report 5933682-3 (Version None)
Quarter: 2008Q4

REPORT INFORMATION
  Report Type: 
  Country: None (occurrence: None)
  Receive Date: 20081029
  Receipt Date: 20081021
  Transmission Date: 20090506
  Serious: Yes (Other)
  Sender: FDA-Public Use
  Company Number: GB-SANOFI-SYNTHELABO-A01200813367

PATIENT
  Age: 53 Year
  Sex: Female
  Weight: 80 kg

DRUGS (7)
  1. OMEPRAZOLE [Concomitant]
     Route: 048
  2. FLUOXETINE [Concomitant]
     Indication: ANXIETY
     Route: 048
  3. FLUOXETINE [Concomitant]
     Indication: DEPRESSION
     Route: 048
  4. DOMPERIDONE [Concomitant]
     Route: 048
  5. DEXAMETHASONE 4MG TAB [Concomitant]
     Route: 048
  6. CAPECITABINE [Suspect]
     Indication: COLORECTAL CANCER
     Route: 048
     Dates: start: 20080327, end: 20080327
  7. ELOXATIN [Suspect]
     Indication: COLORECTAL CANCER
     Route: 042
     Dates: start: 20080327, end: 20080327

REACTIONS (1)
  - VASCULITIC RASH [None]
